FAERS Safety Report 6965727-6 (Version None)
Quarter: 2010Q3

REPORT INFORMATION
  Report Type: 
  Country: None (occurrence: None)
  Receive Date: 20100903
  Receipt Date: 20100901
  Transmission Date: 20110219
  Serious: Yes (Life-Threatening)
  Sender: FDA-Public Use
  Company Number: CA-MERCK-1009USA00286

PATIENT
  Age: 70 Year
  Sex: Female
  Weight: 66 kg

DRUGS (13)
  1. PRINIVIL [Suspect]
     Route: 048
  2. ALFENTANIL HYDROCHLORIDE [Suspect]
     Route: 042
  3. ATRACURIUM BESYLATE [Suspect]
     Route: 042
  4. BECLOMETHASONE DIPROPIONATE [Concomitant]
     Route: 065
  5. DIGOXIN [Concomitant]
     Route: 065
  6. ENFLURANE [Suspect]
     Route: 065
  7. INSULIN ZINC [Concomitant]
     Route: 065
  8. ISOPTIN SR [Concomitant]
     Route: 065
  9. NITROUS OXIDE [Suspect]
     Route: 065
  10. PENTOTHAL [Suspect]
     Route: 042
  11. PROPOFOL [Suspect]
     Route: 065
  12. VENTOLIN [Concomitant]
     Route: 065
  13. DROPERIDOL [Suspect]
     Route: 042

REACTIONS (5)
  - ANGIOEDEMA [None]
  - DYSPNOEA [None]
  - FEELING ABNORMAL [None]
  - GLOSSODYNIA [None]
  - SWOLLEN TONGUE [None]
